FAERS Safety Report 6535926-6 (Version None)
Quarter: 2010Q1

REPORT INFORMATION
  Report Type: 
  Country: None (occurrence: None)
  Receive Date: 20100113
  Receipt Date: 20091201
  Transmission Date: 20100710
  Serious: Yes (Hospitalization)
  Sender: FDA-Public Use
  Company Number: A0832059A

PATIENT
  Age: 69 Year
  Sex: Male

DRUGS (7)
  1. AVANDIA [Suspect]
     Route: 048
  2. BENICAR [Concomitant]
  3. FIORICET [Concomitant]
  4. CLARITIN [Concomitant]
  5. FLONASE [Concomitant]
  6. MECLIZINE [Concomitant]
  7. ZESTORETIC [Concomitant]

REACTIONS (2)
  - CARDIAC FAILURE CONGESTIVE [None]
  - MYOCARDIAL INFARCTION [None]
